FAERS Safety Report 5731377-2 (Version None)
Quarter: 2008Q2

REPORT INFORMATION
  Report Type: 
  Country: None (occurrence: None)
  Receive Date: 20080508
  Receipt Date: 20080428
  Transmission Date: 20081010
  Serious: Yes (Hospitalization)
  Sender: FDA-Public Use
  Company Number: AU-JNJFOC-20080301538

PATIENT
  Age: 46 Year
  Sex: Male
  Weight: 70 kg

DRUGS (7)
  1. DOXORUBICIN HCL [Suspect]
     Route: 042
  2. DOXORUBICIN HCL [Suspect]
     Indication: GLIOBLASTOMA MULTIFORME
     Route: 042
  3. TEMEZOLOMIDE [Suspect]
     Route: 048
  4. TEMEZOLOMIDE [Suspect]
     Indication: GLIOBLASTOMA MULTIFORME
     Route: 048
  5. DEXAMETHASONE [Concomitant]
     Indication: GLIOBLASTOMA
     Route: 048
  6. SIMVASTATIN [Concomitant]
     Indication: HYPERCHOLESTEROLAEMIA
     Route: 048
  7. VALPROIC ACID [Concomitant]
     Indication: GLIOBLASTOMA
     Route: 048

REACTIONS (1)
  - PNEUMOCYSTIS JIROVECI PNEUMONIA [None]
